FAERS Safety Report 5792262-3 (Version None)
Quarter: 2008Q2

REPORT INFORMATION
  Report Type: 
  Country: None (occurrence: None)
  Receive Date: 20080625
  Receipt Date: 20080326
  Transmission Date: 20081010
  Serious: Yes (Other)
  Sender: FDA-Public Use
  Company Number: US-WYE-H02113008

PATIENT
  Age: 60 Year
  Sex: Male
  Weight: 79.45 kg

DRUGS (5)
  1. TORISEL [Suspect]
     Indication: RENAL CELL CARCINOMA
     Dosage: 25 MG 1X PER 1 WK, INTRAVENOUS
     Route: 042
     Dates: start: 20071119
  2. GLYBURIDE [Concomitant]
  3. CAPTOPRIL [Concomitant]
  4. COLACE (DOCUSATE SODIUM) [Concomitant]
  5. ACTOS [Concomitant]

REACTIONS (2)
  - LIVER FUNCTION TEST ABNORMAL [None]
  - STOMATITIS [None]
